FAERS Safety Report 4333963-3 (Version None)
Quarter: 2004Q2

REPORT INFORMATION
  Report Type: 
  Country: None (occurrence: None)
  Receive Date: 20040402
  Receipt Date: 20040323
  Transmission Date: 20050107
  Serious: Yes (Other)
  Sender: FDA-Public Use
  Company Number: 2004020388

PATIENT
  Age: 79 Year
  Sex: Male

DRUGS (5)
  1. SULPERAZON (CEFOPERAZONE, SULBACTAM) [Suspect]
     Indication: PNEUMONIA
     Dosage: 2 GRAM, INTRAVENOUS
     Route: 042
     Dates: start: 20040315, end: 20040301
  2. EPINASTINE HYDROCHLORIDE (EPINASTINE HYDROCHLORIDE) [Concomitant]
  3. PANTETHINE (PANTETHINE) [Concomitant]
  4. DOMPERIDONE (DOMPERIDONE) [Concomitant]
  5. BETAMETHASONE [Concomitant]

REACTIONS (2)
  - HYPOTHERMIA [None]
  - SEPSIS [None]
